FAERS Safety Report 8059431-3 (Version None)
Quarter: 2012Q1

REPORT INFORMATION
  Report Type: 
  Country: None (occurrence: None)
  Receive Date: 20120120
  Receipt Date: 20120111
  Transmission Date: 20120608
  Serious: Yes (Hospitalization, Other)
  Sender: FDA-Public Use
  Company Number: FR-NOVOPROD-341388

PATIENT
  Age: 66 Year
  Sex: Male
  Weight: 70 kg

DRUGS (7)
  1. METFORMIN HCL [Concomitant]
  2. IRBESARTAN [Concomitant]
  3. NEXIUM [Concomitant]
  4. PLAVIX [Concomitant]
  5. DIAMICRON [Concomitant]
     Dosage: 120 MG, QD
     Route: 048
     Dates: start: 20101014
  6. VICTOZA [Suspect]
     Indication: TYPE 2 DIABETES MELLITUS
     Dosage: 1.2 MG, QD
     Route: 058
     Dates: start: 20101214, end: 20111125
  7. LEVEMIR [Concomitant]

REACTIONS (1)
  - HEPATIC NEOPLASM MALIGNANT [None]
